FAERS Safety Report 24530936 (Version 1)
Quarter: 2024Q4

REPORT INFORMATION
  Report Type: Spontaneous
  Country: US (occurrence: None)
  Receive Date: 20241021
  Receipt Date: 20241021
  Transmission Date: 20250115
  Serious: Yes (Hospitalization, Other)
  Sender: UNICHEM
  Company Number: US-Unichem Pharmaceuticals (USA) Inc-UCM202410-001370

PATIENT
  Age: 76 Year
  Sex: Female

DRUGS (2)
  1. TRAMADOL HCL [Suspect]
     Active Substance: TRAMADOL HYDROCHLORIDE
     Indication: Product used for unknown indication
     Dosage: UNKNOWN
  2. BACLOFEN [Suspect]
     Active Substance: BACLOFEN
     Indication: Product used for unknown indication
     Dosage: UNKNOWN

REACTIONS (6)
  - Pulseless electrical activity [Unknown]
  - Somatosensory evoked potentials abnormal [Unknown]
  - Status epilepticus [Unknown]
  - Reflexes abnormal [Unknown]
  - Mydriasis [Unknown]
  - Overdose [Unknown]
